FAERS Safety Report 5689823-9 (Version None)
Quarter: 2008Q1

REPORT INFORMATION
  Report Type: 
  Country: None (occurrence: None)
  Receive Date: 20080331
  Receipt Date: 20080331
  Transmission Date: 20080703
  Serious: Yes (Life-Threatening)
  Sender: FDA-Public Use
  Company Number: None

PATIENT
  Age: 48 Year
  Sex: Female
  Weight: 88.4514 kg

DRUGS (1)
  1. SINGULAIR [Suspect]
     Indication: MULTIPLE ALLERGIES
     Dosage: 1 TAB  PER DAY  PO
     Route: 048
     Dates: start: 20080201, end: 20080318

REACTIONS (5)
  - BRUXISM [None]
  - CRYING [None]
  - FEELING ABNORMAL [None]
  - NO THERAPEUTIC RESPONSE [None]
  - SUICIDAL IDEATION [None]
